FAERS Safety Report 16971106 (Version 1)
Quarter: 2019Q4

REPORT INFORMATION
  Report Type: Report from Study
  Country: US (occurrence: US)
  Receive Date: 20191029
  Receipt Date: 20191029
  Transmission Date: 20200122
  Serious: Yes (Death)
  Sender: FDA-Public Use
  Company Number: US-BAYER-2019-192943

PATIENT
  Age: 63 Year
  Sex: Female

DRUGS (1)
  1. ADEMPAS [Suspect]
     Active Substance: RIOCIGUAT
     Indication: PULMONARY ARTERIAL HYPERTENSION
     Dosage: UNK
     Dates: start: 201701, end: 20190516

REACTIONS (6)
  - Right ventricular failure [Fatal]
  - Systemic scleroderma [Fatal]
  - Cardiogenic shock [Fatal]
  - Septic shock [Fatal]
  - Embolism [Fatal]
  - Pulmonary hypertension [Fatal]
